FAERS Safety Report 8943563 (Version 1)
Quarter: 2012Q4

REPORT INFORMATION
  Report Type: 
  Country: US (occurrence: US)
  Receive Date: 20121204
  Receipt Date: 20121204
  Transmission Date: 20130627
  Serious: Yes (Other)
  Sender: FDA-Public Use
  Company Number: US-SANOFI-AVENTIS-2012SA085710

PATIENT
  Age: 84 Year
  Sex: Female

DRUGS (2)
  1. NASACORT [Suspect]
     Route: 045
  2. PHENYLEPHRINE [Suspect]
     Indication: SINUS DISORDER NOS
     Route: 045
     Dates: start: 2007, end: 201205

REACTIONS (2)
  - Disease recurrence [Not Recovered/Not Resolved]
  - Glaucoma [Not Recovered/Not Resolved]
